FAERS Safety Report 7191922-X (Version None)
Quarter: 2010Q4

REPORT INFORMATION
  Report Type: 
  Country: None (occurrence: None)
  Receive Date: 20101223
  Receipt Date: 20101027
  Transmission Date: 20110411
  Serious: No
  Sender: FDA-Public Use
  Company Number: US-BAYER-201023227BCC

PATIENT
  Sex: Male
  Weight: 12 kg

DRUGS (3)
  1. ALEVE [Suspect]
     Indication: ACCIDENTAL DRUG INTAKE BY CHILD
     Route: 048
     Dates: start: 20101027
  2. SINGULAIR [Concomitant]
     Indication: HYPERSENSITIVITY
  3. UNCODEABLE ^UNCLASSIFIABLE^ [Concomitant]
     Route: 061

REACTIONS (1)
  - NO ADVERSE EVENT [None]
